FAERS Safety Report 5849220-X (Version None)
Quarter: 2008Q3

REPORT INFORMATION
  Report Type: 
  Country: None (occurrence: None)
  Receive Date: 20080818
  Receipt Date: 20080818
  Transmission Date: 20090109
  Serious: Yes (Life-Threatening, Hospitalization)
  Sender: FDA-Public Use
  Company Number: None

PATIENT
  Age: 45 Year
  Sex: Female
  Weight: 58.9676 kg

DRUGS (1)
  1. BACTRIM [Suspect]
     Indication: SINUSITIS
     Dosage: 1 PILL 2X DAILY
     Dates: start: 20080715, end: 20080721

REACTIONS (3)
  - ANTIBODY TEST POSITIVE [None]
  - STEVENS-JOHNSON SYNDROME [None]
  - VARICELLA [None]
